FAERS Safety Report 21457807 (Version 7)
Quarter: 2023Q1

REPORT INFORMATION
  Report Type: Report from Study
  Country: TH (occurrence: TH)
  Receive Date: 20221014
  Receipt Date: 20230306
  Transmission Date: 20230417
  Serious: Yes (Death, Hospitalization)
  Sender: FDA-Public Use
  Company Number: TH-GLAXOSMITHKLINE-TH2022141497

PATIENT

DRUGS (9)
  1. BELANTAMAB MAFODOTIN [Suspect]
     Active Substance: BELANTAMAB MAFODOTIN
     Indication: Plasma cell myeloma
     Dosage: 1.4 MG/KG, QD, Q6W (1.9 MG/KG)
     Route: 042
     Dates: start: 20220920
  2. LAMIVUDINE [Concomitant]
     Active Substance: LAMIVUDINE
     Indication: Antiviral prophylaxis
     Dosage: 150 MG, QD
     Route: 048
     Dates: start: 20220809, end: 20221005
  3. OMEPRAZOLE [Concomitant]
     Active Substance: OMEPRAZOLE
     Indication: Haemorrhage prophylaxis
     Dosage: 20 MG, QD
     Route: 048
     Dates: start: 20171003, end: 20221005
  4. PREDNISOLONE [Concomitant]
     Active Substance: PREDNISOLONE
     Indication: Secondary adrenocortical insufficiency
     Dosage: 5 MG, QD
     Route: 048
     Dates: start: 20221002, end: 20221005
  5. FOLIC ACID [Concomitant]
     Active Substance: FOLIC ACID
     Indication: Supplementation therapy
     Dosage: 5 MG, QD
     Route: 048
     Dates: start: 20220809, end: 20221005
  6. GABAPENTIN [Concomitant]
     Active Substance: GABAPENTIN
     Indication: Neuralgia
     Dosage: 300 MG, QD
     Route: 048
     Dates: start: 20220412, end: 20221005
  7. SODIUM BICARBONATE [Concomitant]
     Active Substance: SODIUM BICARBONATE
     Indication: Metabolic acidosis
     Dosage: 500 MG, BID
     Route: 048
     Dates: start: 20220825, end: 20221005
  8. ACYCLOVIR [Concomitant]
     Active Substance: ACYCLOVIR
     Indication: Varicella zoster virus infection
     Dosage: 400 MG, BID
     Route: 048
     Dates: start: 20171003, end: 20221005
  9. PIPERACILLIN SODIUM\TAZOBACTAM SODIUM [Concomitant]
     Active Substance: PIPERACILLIN SODIUM\TAZOBACTAM SODIUM
     Indication: Infection
     Dosage: 4.5 G, EVERY 6 HOURS
     Route: 042
     Dates: start: 20221002, end: 20221006

REACTIONS (3)
  - Systemic inflammatory response syndrome [Fatal]
  - Infection [Fatal]
  - Organ failure [Fatal]

NARRATIVE: CASE EVENT DATE: 20221002
